FAERS Safety Report 6120840-0 (Version None)
Quarter: 2009Q1

REPORT INFORMATION
  Report Type: 
  Country: None (occurrence: None)
  Receive Date: 20090317
  Receipt Date: 20090305
  Transmission Date: 20090719
  Serious: Yes (Death, Hospitalization)
  Sender: FDA-Public Use
  Company Number: FR-ROCHE-616281

PATIENT
  Sex: Male
  Weight: 95 kg

DRUGS (10)
  1. CAPECITABINE [Suspect]
     Indication: GASTRIC CANCER
     Route: 048
     Dates: start: 20090120, end: 20090201
  2. OXALIPLATIN [Suspect]
     Indication: GASTRIC CANCER
     Route: 042
     Dates: start: 20090120
  3. OXALIPLATIN [Suspect]
     Dosage: ROUTE: INTRAVENOUS (NOT OTHERWISE SPECIFIED), PATIENT RECEIVED CYCLE 2 ON 09 FEB 2009 AT 100 MG/M2
     Route: 042
     Dates: start: 20090209, end: 20090209
  4. DOCETAXEL [Suspect]
     Indication: GASTRIC CANCER
     Route: 042
     Dates: start: 20090120
  5. DOCETAXEL [Suspect]
     Dosage: ROUTEINTRAVENOUS (NOT OTHERWISE SPECIFIED), PATIENT RECEIVED SECOND CYCLE ON 09 FEB 2009 AT 50 MG/M2
     Route: 042
     Dates: start: 20090209, end: 20090209
  6. ALLOPURINOL [Concomitant]
  7. KARDEGIC [Concomitant]
  8. CRESTOR [Concomitant]
  9. OMACOR [Concomitant]
  10. APROVEL [Concomitant]

REACTIONS (1)
  - DIARRHOEA [None]
